FAERS Safety Report 8104772-4 (Version None)
Quarter: 2012Q1

REPORT INFORMATION
  Report Type: 
  Country: None (occurrence: None)
  Receive Date: 20120201
  Receipt Date: 20120130
  Transmission Date: 20120608
  Serious: Yes (Other)
  Sender: FDA-Public Use
  Company Number: DE-ABBOTT-11P-062-0710368-00

PATIENT
  Sex: Female

DRUGS (3)
  1. HUMIRA [Suspect]
     Dates: end: 20110209
  2. ANALGESIC [Concomitant]
     Indication: PRODUCT USED FOR UNKNOWN INDICATION
     Route: 062
  3. HUMIRA [Suspect]
     Indication: ANKYLOSING SPONDYLITIS
     Route: 058
     Dates: start: 20070807

REACTIONS (6)
  - IMPLANT SITE INFLAMMATION [None]
  - ANTIBODY TEST POSITIVE [None]
  - SEPSIS [None]
  - FISTULA [None]
  - OPTIC NERVE DISORDER [None]
  - SPINAL CORD DISORDER [None]
